FAERS Safety Report 19056349 (Version 2)
Quarter: 2021Q1

REPORT INFORMATION
  Report Type: Spontaneous
  Country: JP (occurrence: JP)
  Receive Date: 20210324
  Receipt Date: 20210327
  Transmission Date: 20210420
  Serious: Yes (Hospitalization, Other)
  Sender: FDA-Public Use
  Company Number: NVSC2021JP067512

PATIENT
  Age: 73 Year
  Sex: Female
  Weight: 37.1 kg

DRUGS (7)
  1. NOVAMIN [Concomitant]
     Indication: HEAD AND NECK CANCER
     Dosage: 5 MG, QD
     Route: 048
     Dates: start: 20200702
  2. OPDIVO [Suspect]
     Active Substance: NIVOLUMAB
     Indication: HEAD AND NECK CANCER
     Dosage: 240 MG
     Route: 042
     Dates: start: 20200708, end: 20200708
  3. RIVASTACH [Suspect]
     Active Substance: RIVASTIGMINE
     Indication: DEMENTIA ALZHEIMER^S TYPE
     Dosage: 13.5 MG, QD
     Route: 062
     Dates: start: 20200418
  4. HYPEN [Concomitant]
     Indication: HEAD AND NECK CANCER
     Dosage: 200 MG, Q12H
     Route: 048
     Dates: start: 20200702
  5. REBAMIPIDE [Concomitant]
     Active Substance: REBAMIPIDE
     Indication: PROPHYLAXIS
     Dosage: 100 MG, Q8H
     Route: 048
  6. MEMARY [Concomitant]
     Active Substance: MEMANTINE HYDROCHLORIDE
     Indication: PRODUCT USED FOR UNKNOWN INDICATION
     Dosage: 5 MG, QD
     Route: 048
     Dates: start: 20200422, end: 20200906
  7. TRAMAL [Concomitant]
     Active Substance: TRAMADOL
     Indication: HEAD AND NECK CANCER
     Dosage: 25 MG, QD
     Route: 048
     Dates: start: 20200702

REACTIONS (1)
  - Stevens-Johnson syndrome [Recovered/Resolved]

NARRATIVE: CASE EVENT DATE: 20200718
